FAERS Safety Report 8894677 (Version 1)
Quarter: 2012Q4

REPORT INFORMATION
  Report Type: 
  Country: US (occurrence: US)
  Receive Date: 20121108
  Receipt Date: 20121108
  Transmission Date: 20130627
  Serious: Yes (Hospitalization)
  Sender: FDA-Public Use
  Company Number: US-BRISTOL-MYERS SQUIBB COMPANY-17079625

PATIENT
  Age: 68 Year
  Sex: Male

DRUGS (9)
  1. YERVOY [Suspect]
     Dosage: also on 14Sep12,05Oct12
     Dates: start: 20120816
  2. ALLOPURINOL [Concomitant]
  3. ASPIRIN [Concomitant]
  4. COREG [Concomitant]
  5. LOMOTIL [Concomitant]
  6. SYNTHROID [Concomitant]
  7. MEGACE [Concomitant]
  8. METFORMIN [Concomitant]
  9. SOLU-MEDROL [Concomitant]

REACTIONS (4)
  - Hypotension [Unknown]
  - Dyspnoea [Unknown]
  - Diarrhoea haemorrhagic [Unknown]
  - Dehydration [Unknown]
